FAERS Safety Report 24134211 (Version 2)
Quarter: 2024Q4

REPORT INFORMATION
  Report Type: Report from Study
  Country: US (occurrence: US)
  Receive Date: 20240724
  Receipt Date: 20241021
  Transmission Date: 20250115
  Serious: Yes (Other)
  Sender: ABBVIE
  Company Number: US-ABBVIE-5850381

PATIENT
  Sex: Female

DRUGS (2)
  1. RINVOQ [Suspect]
     Active Substance: UPADACITINIB
     Indication: Rheumatoid arthritis
     Dosage: LAST ADMIN DATE- 2023
     Route: 048
     Dates: start: 20230831
  2. RINVOQ [Suspect]
     Active Substance: UPADACITINIB
     Indication: Rheumatoid arthritis
     Route: 048
     Dates: start: 20230901

REACTIONS (8)
  - Systemic lupus erythematosus [Not Recovered/Not Resolved]
  - Eye injury [Not Recovered/Not Resolved]
  - Pruritus [Unknown]
  - Arthritis [Unknown]
  - Disease susceptibility [Unknown]
  - Rheumatoid arthritis [Unknown]
  - Iritis [Not Recovered/Not Resolved]
  - Sinusitis [Unknown]

NARRATIVE: CASE EVENT DATE: 20240101
